FAERS Safety Report 7645132-X (Version None)
Quarter: 2011Q3

REPORT INFORMATION
  Report Type: 
  Country: None (occurrence: None)
  Receive Date: 20110725
  Receipt Date: 20110629
  Transmission Date: 20111222
  Serious: Yes (Death, Life-Threatening, Hospitalization, Disabling, Other)
  Sender: FDA-Public Use
  Company Number: 012278

PATIENT
  Age: 57 Year
  Sex: Female

DRUGS (33)
  1. ESTRADIOL [Concomitant]
  2. FLUCONAZOLE [Concomitant]
  3. FLUOXETINE HCL [Concomitant]
  4. MAGNESIUM SULFATE [Concomitant]
  5. VORICONAZOLE [Concomitant]
  6. CLOTRIMAZOLE [Concomitant]
  7. FILGRASTIM [Concomitant]
  8. FUROSEMIDE [Concomitant]
  9. ACYCLOVIR [Concomitant]
  10. AQUAPHOR HEALING OINTMENT (VISABOLOL, SERESIN, PARAFFIN SOFT, PARAFFIN [Concomitant]
  11. SUCCINYLCHOLINE CHLORIDE [Concomitant]
  12. URSODIOL [Concomitant]
  13. DIPHENHYDRAMINE HCL [Concomitant]
  14. DIVALPROEX SODIUM [Concomitant]
  15. PHENAZOPYRIDINE HCL TAB [Concomitant]
  16. VANCOMYCIN [Concomitant]
  17. ETOPOSIDE [Concomitant]
  18. CONJUGEN (EQUILIN SULFATE SODIUM, ESTRONE SODIUM SULFATE) [Concomitant]
  19. ETOMIDATE [Concomitant]
  20. FENTANYL [Concomitant]
  21. BUPROPION HCL [Concomitant]
  22. OMEPRAZOLE [Concomitant]
  23. ACETAMINOPHEN [Concomitant]
  24. HYDROMORPHONE HCL [Concomitant]
  25. LOPERAMIDE HCL [Concomitant]
  26. PROCHLORPERAZINE (PROCHLORPERAZINE MALEATE) [Concomitant]
  27. CYCLOPHOSPHAMIDE [Concomitant]
  28. BUSULFAN [Suspect]
     Indication: STEM CELL TRANSPLANT
     Dosage: 44 MG, SINGLE, INTRAVENOUS; 181 MG, DAILY DOSE, INTRAVENOUS
     Route: 042
     Dates: start: 20101104, end: 20101107
  29. BUSULFAN [Suspect]
     Indication: STEM CELL TRANSPLANT
     Dosage: 44 MG, SINGLE, INTRAVENOUS; 181 MG, DAILY DOSE, INTRAVENOUS
     Route: 042
     Dates: start: 20101101, end: 20101101
  30. HEPARIN [Concomitant]
  31. LEVOFLOXACIN [Concomitant]
  32. MEROPENEM [Concomitant]
  33. OXYCODONE HCL [Concomitant]

REACTIONS (11)
  - HYPERNATRAEMIA [None]
  - SINUS TACHYCARDIA [None]
  - RENAL FAILURE ACUTE [None]
  - RESPIRATORY DISTRESS [None]
  - ASPERGILLOSIS [None]
  - HYPOTENSION [None]
  - BACTERIAL INFECTION [None]
  - ASPIRATION [None]
  - LUNG INFECTION [None]
  - PNEUMONIA [None]
  - RESPIRATORY FAILURE [None]
